FAERS Safety Report 8032555-2 (Version None)
Quarter: 2012Q1

REPORT INFORMATION
  Report Type: 
  Country: None (occurrence: None)
  Receive Date: 20120110
  Receipt Date: 20110523
  Transmission Date: 20120608
  Serious: No
  Sender: FDA-Public Use
  Company Number: US-MYLANLABS-2011S1010472

PATIENT
  Age: 85 Year
  Sex: Male
  Weight: 56.7 kg

DRUGS (13)
  1. ISOSORB /00586303/ [Concomitant]
     Indication: BLOOD PRESSURE INCREASED
     Route: 048
  2. METOPROLOL SUCCINATE [Concomitant]
     Indication: BLOOD PRESSURE INCREASED
     Route: 048
  3. FENOFIBRATE [Suspect]
     Indication: BLOOD CHOLESTEROL INCREASED
     Route: 048
     Dates: start: 20110301, end: 20110501
  4. WELCHOL [Concomitant]
     Indication: BLOOD CHOLESTEROL INCREASED
     Route: 048
     Dates: start: 20100601
  5. AVODART [Concomitant]
     Route: 048
     Dates: start: 20090101
  6. CENTRUM [Concomitant]
     Route: 048
  7. CALCIUM ACETATE [Concomitant]
     Route: 048
  8. PLAVIX [Concomitant]
     Route: 048
  9. AMLODIPINE [Concomitant]
     Indication: BLOOD PRESSURE INCREASED
     Route: 048
  10. TRICOR [Suspect]
     Indication: BLOOD CHOLESTEROL INCREASED
     Route: 048
     Dates: start: 20101201, end: 20110301
  11. GALANTAMINE HYDROBROMIDE [Concomitant]
     Indication: MEMORY IMPAIRMENT
     Route: 048
     Dates: start: 20100101
  12. RANITIDINE [Concomitant]
     Indication: GASTROOESOPHAGEAL REFLUX DISEASE
     Route: 048
     Dates: start: 20100601
  13. BENAZEPRIL HYDROCHLORIDE [Concomitant]
     Indication: BLOOD PRESSURE INCREASED
     Route: 048

REACTIONS (4)
  - DIARRHOEA [None]
  - MUSCULAR WEAKNESS [None]
  - CONFUSIONAL STATE [None]
  - WEIGHT DECREASED [None]
